FAERS Safety Report 8966472 (Version 1)
Quarter: 2012Q4

REPORT INFORMATION
  Report Type: 
  Country: US (occurrence: US)
  Receive Date: 20121214
  Receipt Date: 20121214
  Transmission Date: 20130627
  Serious: No
  Sender: FDA-Public Use
  Company Number: US-ASTRAZENECA-2012SE90653

PATIENT
  Age: 51 Year
  Sex: Male

DRUGS (17)
  1. NEXIUM [Suspect]
     Route: 048
  2. LIPITOR [Concomitant]
  3. ACCUCHECK AVIVA [Concomitant]
  4. ADVAIR DISKUS [Concomitant]
  5. PROVENTIL [Concomitant]
  6. TAGAMET [Concomitant]
  7. FLEXERIL [Concomitant]
  8. LORTAB [Concomitant]
  9. JANUMET [Concomitant]
  10. MEVACOR [Concomitant]
  11. LYRICA [Concomitant]
  12. SPIRIVA WITH HANDIHALER [Concomitant]
  13. VITAMIN D3 [Concomitant]
  14. TDAP [Concomitant]
  15. ELAVIL [Concomitant]
  16. INFLUENZA [Concomitant]
  17. PROVENTIL HFA [Concomitant]

REACTIONS (7)
  - Back pain [Unknown]
  - Chronic obstructive pulmonary disease [Unknown]
  - Gastrooesophageal reflux disease [Unknown]
  - Snoring [Unknown]
  - Hepatic steatosis [Unknown]
  - Depression [Unknown]
  - Insomnia [Unknown]
